FAERS Safety Report 12953774 (Version 3)
Quarter: 2017Q1

REPORT INFORMATION
  Report Type: Report from Study
  Country: JP (occurrence: JP)
  Receive Date: 20161118
  Receipt Date: 20170126
  Transmission Date: 20170428
  Serious: Yes (Other)
  Sender: FDA-Public Use
  Company Number: JP-ALXN-A201603019AA

PATIENT

DRUGS (37)
  1. PREVNAR 13 [Suspect]
     Active Substance: PNEUMOCOCCAL 13-VALENT CONJUGATE VACCINE
     Dosage: 0.5 ML, UNK
     Route: 058
     Dates: start: 20160323
  2. MORPHINE HYDROCHLORIDE [Concomitant]
     Active Substance: MORPHINE HYDROCHLORIDE
     Indication: PRODUCT USED FOR UNKNOWN INDICATION
     Dosage: 0.2-0.3 MG, QD
     Route: 041
     Dates: start: 20160118, end: 20160129
  3. PHENOBAL                           /00023201/ [Concomitant]
     Active Substance: PHENOBARBITAL
     Indication: PRODUCT USED FOR UNKNOWN INDICATION
     Dosage: 12-17 ML, QD
     Route: 048
     Dates: start: 20151218, end: 20160406
  4. CLARITHROMYCIN. [Concomitant]
     Active Substance: CLARITHROMYCIN
     Indication: PRODUCT USED FOR UNKNOWN INDICATION
     Dosage: 10-20 MG, QD
     Route: 048
     Dates: start: 20151204, end: 20160120
  5. FENTANYL. [Concomitant]
     Active Substance: FENTANYL
     Indication: PRODUCT USED FOR UNKNOWN INDICATION
     Dosage: 0.003-0.35 MG, QD
     Route: 042
     Dates: start: 20160102, end: 20160323
  6. MUSCURATE [Concomitant]
     Active Substance: VECURONIUM BROMIDE
     Indication: PRODUCT USED FOR UNKNOWN INDICATION
     Dosage: 0.3 MG, QD
     Route: 042
     Dates: start: 20160215
  7. DIPHTHERIA, TETANUS + PERTU. VACC. (ADS.) I.P [Concomitant]
     Indication: PROPHYLAXIS
     Dosage: UNK
     Route: 058
     Dates: start: 20160301
  8. HIB VACCINE [Suspect]
     Active Substance: HAEMOPHILUS INFLUENZAE TYPE B
     Dosage: UNK
     Route: 058
     Dates: start: 20160404
  9. SODIUM CHLORIDE. [Concomitant]
     Active Substance: SODIUM CHLORIDE
     Indication: PRODUCT USED FOR UNKNOWN INDICATION
     Dosage: 0.14-0.24 G, QD
     Route: 048
     Dates: start: 20151217, end: 20160518
  10. POTASSIUM PHOSPHATE                /00599901/ [Concomitant]
     Indication: PRODUCT USED FOR UNKNOWN INDICATION
     Dosage: 0.5 ML, QD
     Route: 048
     Dates: start: 20160106, end: 20160310
  11. RINDERON VG [Concomitant]
     Active Substance: BETAMETHASONE VALERATE\GENTAMICIN SULFATE
     Indication: PROPHYLAXIS
     Dosage: AS INSTRUCTED OF THE PHYSICIAN
     Route: 061
     Dates: start: 20160128, end: 20160513
  12. CARBOCISTEINE [Concomitant]
     Active Substance: CARBOCYSTEINE
     Indication: PRODUCT USED FOR UNKNOWN INDICATION
     Dosage: 1.2 MG, QD
     Route: 048
     Dates: start: 20151204, end: 20160106
  13. CORTRIL [Concomitant]
     Active Substance: HYDROCORTISONE
     Indication: PRODUCT USED FOR UNKNOWN INDICATION
     Dosage: 3-5 MG, QD
     Route: 048
     Dates: start: 20160112, end: 20160120
  14. LASIX [Concomitant]
     Active Substance: FUROSEMIDE
     Indication: PRODUCT USED FOR UNKNOWN INDICATION
     Dosage: 0.7-4.5 MG, QD
     Route: 042
     Dates: start: 20151127, end: 20160329
  15. MUSCULAX [Concomitant]
     Active Substance: VECURONIUM BROMIDE
     Indication: PRODUCT USED FOR UNKNOWN INDICATION
     Dosage: 0.4 MG, QD
     Route: 042
     Dates: start: 20160311
  16. DIPHTHERIA, TETANUS + PERTU. VACC. (ADS.) I.P [Concomitant]
     Dosage: UNK
     Route: 058
     Dates: start: 20160607
  17. MIDAZOLAM [Concomitant]
     Active Substance: MIDAZOLAM HYDROCHLORIDE
     Indication: PRODUCT USED FOR UNKNOWN INDICATION
     Dosage: 0.4-10 MG, QD
     Route: 041
     Dates: start: 20151124, end: 20160213
  18. SURFACTEN [Concomitant]
     Indication: PRODUCT USED FOR UNKNOWN INDICATION
     Dosage: 120 MG, UNK
     Route: 007
     Dates: start: 20151124, end: 20160215
  19. VECURONIUM [Concomitant]
     Active Substance: VECURONIUM BROMIDE
     Indication: PRODUCT USED FOR UNKNOWN INDICATION
     Dosage: 0.2 MG, QD
     Route: 042
     Dates: start: 20160201
  20. CALCIUM LACTATE [Concomitant]
     Active Substance: CALCIUM LACTATE
     Indication: PRODUCT USED FOR UNKNOWN INDICATION
     Dosage: 1.5-1.8 G, QD
     Route: 048
     Dates: start: 20160519, end: 20160524
  21. PREVNAR 13 [Suspect]
     Active Substance: PNEUMOCOCCAL 13-VALENT CONJUGATE VACCINE
     Indication: PROPHYLAXIS
     Dosage: 0.5 ML, UNK
     Route: 058
     Dates: start: 20160127
  22. TRICLORYL [Concomitant]
     Active Substance: TRICLOFOS SODIUM
     Indication: PRODUCT USED FOR UNKNOWN INDICATION
     Dosage: 1-3 ML, AS NEEDED
     Route: 048
     Dates: start: 20151201, end: 20160410
  23. VICCILLIN                          /00000501/ [Concomitant]
     Indication: PROPHYLAXIS
     Dosage: 100 MG, QD
     Route: 042
     Dates: start: 20151124, end: 20151203
  24. PREVNAR 13 [Suspect]
     Active Substance: PNEUMOCOCCAL 13-VALENT CONJUGATE VACCINE
     Dosage: 0.5 ML, UNK
     Route: 058
     Dates: start: 20160511
  25. ALDACTONE A [Concomitant]
     Active Substance: SPIRONOLACTONE
     Indication: PRODUCT USED FOR UNKNOWN INDICATION
     Dosage: 2-3 MG, QD
     Route: 048
     Dates: start: 20160127, end: 20160413
  26. FUROSEMIDE. [Concomitant]
     Active Substance: FUROSEMIDE
     Indication: PRODUCT USED FOR UNKNOWN INDICATION
     Dosage: 2-7 MG, QD
     Route: 048
     Dates: start: 20151205, end: 20160413
  27. AMIKACIN SULFATE. [Concomitant]
     Active Substance: AMIKACIN SULFATE
     Indication: PROPHYLAXIS
     Dosage: 30-40 MG, UNK
     Route: 041
     Dates: start: 20151124, end: 20160110
  28. ECOLICIN                           /00562601/ [Concomitant]
     Indication: PROPHYLAXIS
     Dosage: AS INSTRUCTED OF THE PHYSICIAN
     Route: 047
     Dates: start: 20151124
  29. STRENSIQ [Suspect]
     Active Substance: ASFOTASE ALFA
     Indication: HYPOPHOSPHATASIA
     Dosage: 2 MG/KG, TIW
     Route: 058
     Dates: start: 20151126
  30. HIB VACCINE [Suspect]
     Active Substance: HAEMOPHILUS INFLUENZAE TYPE B
     Dosage: UNK
     Route: 058
     Dates: start: 20160526
  31. NOBELBAR [Concomitant]
     Active Substance: PHENOBARBITAL SODIUM
     Indication: PRODUCT USED FOR UNKNOWN INDICATION
     Dosage: 5-40 MG, QD
     Route: 042
     Dates: start: 20151124, end: 20160312
  32. REVATIO [Concomitant]
     Active Substance: SILDENAFIL CITRATE
     Indication: PRODUCT USED FOR UNKNOWN INDICATION
     Dosage: 1.5-5.1 MG, QD
     Route: 048
     Dates: start: 20150224, end: 20160519
  33. TRICLORYL [Concomitant]
     Active Substance: TRICLOFOS SODIUM
     Dosage: 1.5 ML, QD
     Route: 048
     Dates: start: 20160109, end: 20160204
  34. SOLU-CORTEF [Concomitant]
     Active Substance: HYDROCORTISONE SODIUM SUCCINATE
     Indication: PRODUCT USED FOR UNKNOWN INDICATION
     Dosage: 1-6 MG, QD
     Route: 041
     Dates: start: 20151228, end: 20160204
  35. DIPHTHERIA, TETANUS + PERTU. VACC. (ADS.) I.P [Concomitant]
     Dosage: UNK
     Route: 058
     Dates: start: 20160427
  36. HIB VACCINE [Suspect]
     Active Substance: HAEMOPHILUS INFLUENZAE TYPE B
     Indication: PROPHYLAXIS
     Dosage: UNK
     Route: 058
     Dates: start: 20160127
  37. DEXART [Concomitant]
     Active Substance: DEXAMETHASONE SODIUM PHOSPHATE
     Indication: PRODUCT USED FOR UNKNOWN INDICATION
     Dosage: 0.05-0.1 MG, QD
     Route: 041
     Dates: start: 20151214, end: 20151224

REACTIONS (6)
  - Cellulitis [Recovered/Resolved]
  - Pneumonia [Recovered/Resolved]
  - Oedema [Recovered/Resolved]
  - Anaemia [Not Recovered/Not Resolved]
  - Anaemia [Recovering/Resolving]
  - Vomiting [Not Recovered/Not Resolved]

NARRATIVE: CASE EVENT DATE: 20160102
